FAERS Safety Report 5148831-7 (Version None)
Quarter: 2006Q4

REPORT INFORMATION
  Report Type: 
  Country: None (occurrence: None)
  Receive Date: 20061113
  Receipt Date: 20061031
  Transmission Date: 20070319
  Serious: Yes (Other)
  Sender: FDA-Public Use
  Company Number: PHBS2006NL16921

PATIENT
  Age: 2 Day
  Sex: Female

DRUGS (3)
  1. TRILEPTAL [Suspect]
     Dosage: MATERNAL DOSE: 300 MG TID
     Route: 064
  2. DEPAKENE [Suspect]
     Dosage: MATERNAL DOSE: 50 MG BID
     Route: 064
  3. KEPPRA [Suspect]
     Dosage: MATERNAL DOSE: 750 MG BID
     Route: 064

REACTIONS (4)
  - DRUG EXPOSURE DURING PREGNANCY [None]
  - NECROTISING ENTEROCOLITIS NEONATAL [None]
  - POLYCYTHAEMIA [None]
  - PREMATURE BABY [None]
